FAERS Safety Report 6875327-4 (Version None)
Quarter: 2010Q3

REPORT INFORMATION
  Report Type: 
  Country: None (occurrence: None)
  Receive Date: 20100727
  Receipt Date: 20070712
  Transmission Date: 20110219
  Serious: Yes (Death, Hospitalization, Other)
  Sender: FDA-Public Use
  Company Number: US-PFIZER INC-2006121057

PATIENT
  Sex: Female
  Weight: 77.1 kg

DRUGS (4)
  1. CELEBREX [Suspect]
     Indication: ARTHRITIS
     Route: 048
     Dates: start: 19990101, end: 20010501
  2. VIOXX [Suspect]
     Indication: ARTHRITIS
     Dates: start: 19990520, end: 20010518
  3. ISOSORBIDE [Concomitant]
     Dates: start: 20010420, end: 20010518
  4. ASPIRIN [Concomitant]
     Dates: start: 19930101, end: 20010518

REACTIONS (3)
  - CARDIAC FAILURE CONGESTIVE [None]
  - CEREBROVASCULAR ACCIDENT [None]
  - MYOCARDIAL INFARCTION [None]
